FAERS Safety Report 7913058-X (Version None)
Quarter: 2011Q4

REPORT INFORMATION
  Report Type: 
  Country: None (occurrence: None)
  Receive Date: 20111114
  Receipt Date: 20111101
  Transmission Date: 20120403
  Serious: Yes (Hospitalization)
  Sender: FDA-Public Use
  Company Number: US-BAYER-201031811NA

PATIENT
  Age: 42 Year
  Sex: Female

DRUGS (12)
  1. YASMIN [Suspect]
     Indication: PREMENSTRUAL SYNDROME
     Dosage: UNK
     Route: 048
     Dates: start: 20060201, end: 20070201
  2. STEROIDS [Concomitant]
     Indication: LUNG INFECTION
     Dosage: UNK
     Dates: start: 20091108
  3. YASMIN [Suspect]
     Dosage: UNK
     Route: 048
     Dates: start: 20091001, end: 20091101
  4. HYDROCODONE BITARTRATE AND ACETAMINOPHEN [Concomitant]
     Dosage: 7.5 MG / 500 MG
     Route: 048
     Dates: start: 20091029
  5. YASMIN [Suspect]
     Indication: POLYCYSTIC OVARIES
     Dosage: UNK
     Route: 048
     Dates: start: 20070301, end: 20070601
  6. YAZ [Suspect]
     Indication: POLYCYSTIC OVARIES
     Dosage: UNK
     Route: 048
     Dates: start: 20070301, end: 20070601
  7. YAZ [Suspect]
     Indication: PREMENSTRUAL SYNDROME
     Dosage: UNK
     Route: 048
     Dates: start: 20060201, end: 20070201
  8. METFORMIN HCL [Concomitant]
     Indication: POLYCYSTIC OVARIES
     Dosage: UNK
     Dates: start: 20090626, end: 20100814
  9. LISINOPRIL [Concomitant]
     Dosage: 20 MG, UNK
     Route: 048
     Dates: start: 20091003
  10. PREMARIN [Concomitant]
     Indication: MENORRHAGIA
     Dosage: 0.3 MG, QD
     Dates: start: 20090911
  11. ANTIBIOTICS [Concomitant]
     Indication: LUNG INFECTION
     Dosage: UNK
     Dates: start: 20091108
  12. YAZ [Suspect]
     Dosage: UNK
     Route: 048
     Dates: start: 20091001, end: 20091101

REACTIONS (4)
  - DEPRESSION [None]
  - PAIN [None]
  - ANXIETY [None]
  - PULMONARY EMBOLISM [None]
